FAERS Safety Report 9088831 (Version 1)
Quarter: 2013Q1

REPORT INFORMATION
  Report Type: Report from Study
  Country: US (occurrence: US)
  Receive Date: 20130218
  Receipt Date: 20130218
  Transmission Date: 20140127
  Serious: No
  Sender: FDA-Public Use
  Company Number: US-ABBOTT-12P-163-0922303-00

PATIENT
  Age: 41 Year
  Sex: Male
  Weight: 80.81 kg

DRUGS (2)
  1. SIMCOR [Suspect]
     Indication: LIPIDS INCREASED
     Dosage: 500/20
     Dates: start: 20120331, end: 20120405
  2. ASPIRIN [Concomitant]
     Indication: PRODUCT USED FOR UNKNOWN INDICATION
     Dates: start: 20120331

REACTIONS (11)
  - Epistaxis [Recovered/Resolved]
  - Flushing [Unknown]
  - Hot flush [Recovered/Resolved]
  - Nausea [Recovered/Resolved]
  - Bradycardia [Recovered/Resolved]
  - Asthenia [Unknown]
  - Hyperhidrosis [Unknown]
  - Dyspnoea [Unknown]
  - Loss of consciousness [Recovered/Resolved]
  - Hypotension [Recovered/Resolved]
  - Fall [Recovered/Resolved]
